FAERS Safety Report 16591840 (Version 2)
Quarter: 2019Q3

REPORT INFORMATION
  Report Type: Report from Study
  Country: US (occurrence: US)
  Receive Date: 20190718
  Receipt Date: 20190812
  Transmission Date: 20191004
  Serious: Yes (Death, Hospitalization)
  Sender: FDA-Public Use
  Company Number: PHEH2019US029790

PATIENT
  Age: 59 Year
  Sex: Male

DRUGS (2)
  1. CARBOPLATIN + ETOPOSIDE [Concomitant]
     Indication: PRODUCT USED FOR UNKNOWN INDICATION
     Dosage: UNK
     Route: 065
     Dates: start: 20180829
  2. ZARXIO [Suspect]
     Active Substance: FILGRASTIM-SNDZ
     Indication: PRODUCT USED FOR UNKNOWN INDICATION
     Dosage: UNK
     Route: 065
     Dates: start: 20180901, end: 20190509

REACTIONS (2)
  - Pneumonia [Unknown]
  - Death [Fatal]

NARRATIVE: CASE EVENT DATE: 20180923
